FAERS Safety Report 5234565-7 (Version None)
Quarter: 2007Q1

REPORT INFORMATION
  Report Type: 
  Country: None (occurrence: None)
  Receive Date: 20070209
  Receipt Date: 20070129
  Transmission Date: 20070707
  Serious: Yes (Death, Hospitalization, Other)
  Sender: FDA-Public Use
  Company Number: US-JNJFOC-20061003682

PATIENT
  Sex: Male
  Weight: 115.7 kg

DRUGS (7)
  1. REMICADE [Suspect]
     Indication: RHEUMATOID ARTHRITIS
     Dosage: 3 DOSE INDUCTION FOLLOWED BY MAINT. Q 8 WEEKS, 300 MG ON 29-JUN-2006, TOTAL 27 INFUSIONS
     Route: 042
  2. CYCLOPHOSPHAMIDE [Suspect]
     Indication: T-CELL LYMPHOMA
  3. ADRIAMYCIN PFS [Suspect]
     Indication: T-CELL LYMPHOMA
  4. VINCRISTINE [Suspect]
     Indication: T-CELL LYMPHOMA
  5. PREDNISONE [Suspect]
     Indication: T-CELL LYMPHOMA
  6. AZULFADINE [Concomitant]
  7. LISINOPRIL [Concomitant]

REACTIONS (9)
  - ACUTE RESPIRATORY DISTRESS SYNDROME [None]
  - ATRIAL FIBRILLATION [None]
  - CHOLECYSTITIS ACUTE [None]
  - DISSEMINATED INTRAVASCULAR COAGULATION [None]
  - GASTROINTESTINAL HAEMORRHAGE [None]
  - MULTI-ORGAN FAILURE [None]
  - PANCYTOPENIA [None]
  - SEPSIS [None]
  - T-CELL LYMPHOMA [None]
